FAERS Safety Report 6371134-X (Version None)
Quarter: 2009Q3

REPORT INFORMATION
  Report Type: 
  Country: None (occurrence: None)
  Receive Date: 20090923
  Receipt Date: 20090915
  Transmission Date: 20100115
  Serious: Yes (Other)
  Sender: FDA-Public Use
  Company Number: US-MERCK-0909USA01941

PATIENT
  Age: 58 Year
  Sex: Male

DRUGS (3)
  1. ISENTRESS [Suspect]
     Indication: HIV INFECTION
     Route: 065
     Dates: start: 20090707, end: 20090826
  2. INTELENCE [Concomitant]
     Indication: HIV INFECTION
     Route: 065
     Dates: start: 20090707, end: 20090824
  3. ZIAGEN [Concomitant]
     Indication: HIV INFECTION
     Route: 065
     Dates: start: 20090707, end: 20090826

REACTIONS (1)
  - RASH MACULO-PAPULAR [None]
